FAERS Safety Report 8168825 (Version 3)
Quarter: 2013Q1

REPORT INFORMATION
  Report Type: Spontaneous
  Country: US (occurrence: US)
  Receive Date: 20111005
  Receipt Date: 20130305
  Transmission Date: 20140127
  Serious: Yes (Other)
  Sender: FDA-Public Use
  Company Number: US-BAYER-2011-093725

PATIENT
  Age: 17 Year
  Sex: Female
  Weight: 68.93 kg

DRUGS (11)
  1. YAZ [Suspect]
     Indication: ORAL CONTRACEPTION
     Dosage: UNK
     Route: 048
     Dates: start: 200802, end: 200904
  2. YAZ [Suspect]
     Indication: PREMENSTRUAL DYSPHORIC DISORDER
  3. YAZ [Suspect]
     Indication: MENORRHAGIA
  4. YAZ [Suspect]
     Indication: PREMENSTRUAL SYNDROME
  5. YASMIN [Suspect]
  6. OCELLA [Suspect]
  7. METOPROLOL [Concomitant]
     Indication: MITRAL VALVE PROLAPSE
     Dosage: 25 MG, UNK
  8. PONSTEL [Concomitant]
     Indication: DYSMENORRHOEA
     Dosage: 250 MG, PRN
     Dates: start: 20080205, end: 20090319
  9. CITALOPRAM [Concomitant]
     Indication: PREMENSTRUAL SYNDROME
     Dosage: 10 MG, UNK
  10. TRINESSA [Concomitant]
     Indication: ORAL CONTRACEPTION
     Dosage: UNK UNK, QD
     Route: 048
  11. TRINESSA [Concomitant]
     Indication: MENSTRUATION IRREGULAR

REACTIONS (10)
  - Cholecystectomy [None]
  - Cholecystitis chronic [None]
  - Biliary dyskinesia [None]
  - Abdominal pain upper [None]
  - Abdominal pain [None]
  - Chest pain [None]
  - Emotional distress [None]
  - Pain [None]
  - Injury [None]
  - Pain [None]
